FAERS Safety Report 24277313 (Version 3)
Quarter: 2024Q3

REPORT INFORMATION
  Report Type: Spontaneous
  Country: FI (occurrence: FI)
  Receive Date: 20240903
  Receipt Date: 20240918
  Transmission Date: 20241016
  Serious: Yes (Life-Threatening, Hospitalization, Other)
  Sender: PFIZER
  Company Number: FI-PFIZER INC-2003021409

PATIENT
  Age: 22 Year
  Sex: Female

DRUGS (1)
  1. DILTIAZEM [Suspect]
     Active Substance: DILTIAZEM
     Dosage: 7.2 G (30 DILZEM 240-MG DEPOT CAPSULES)
     Route: 048

REACTIONS (8)
  - Pneumonia aspiration [Recovered/Resolved]
  - Anuria [Recovered/Resolved]
  - Ileus [Recovered/Resolved]
  - Atrioventricular block first degree [Recovered/Resolved]
  - Hypotension [Recovered/Resolved]
  - Hyperglycaemia [Recovered/Resolved]
  - C-reactive protein increased [Recovered/Resolved]
  - Intentional overdose [Recovered/Resolved]
